FAERS Safety Report 19500682 (Version 2)
Quarter: 2021Q3

REPORT INFORMATION
  Report Type: Report from Study
  Country: US (occurrence: US)
  Receive Date: 20210706
  Receipt Date: 20210709
  Transmission Date: 20211014
  Serious: Yes (Hospitalization)
  Sender: FDA-Public Use
  Company Number: US-JNJFOC-20210712605

PATIENT
  Age: 47 Year
  Sex: Female
  Weight: 79 kg

DRUGS (2)
  1. LETAIRIS [Concomitant]
     Active Substance: AMBRISENTAN
  2. EPOPROSTENOL SODIUM. [Suspect]
     Active Substance: EPOPROSTENOL SODIUM
     Indication: PULMONARY ARTERIAL HYPERTENSION
     Dosage: VELETRI 1.5 MG VIAL INTRAVENOUS CONTINUOUS
     Route: 042

REACTIONS (4)
  - Device occlusion [Unknown]
  - Product administration interrupted [Unknown]
  - Drug delivery system malfunction [Unknown]
  - Underdose [Unknown]

NARRATIVE: CASE EVENT DATE: 20210630
